FAERS Safety Report 13237116 (Version 1)
Quarter: 2017Q1

REPORT INFORMATION
  Report Type: Spontaneous
  Country: DE (occurrence: DE)
  Receive Date: 20170215
  Receipt Date: 20170215
  Transmission Date: 20170428
  Serious: Yes (Death, Hospitalization, Other)
  Sender: FDA-Public Use
  Company Number: DE-MYLANLABS-2017M1008405

PATIENT

DRUGS (11)
  1. BENDAMUSTINE HYDROCHLORIDE. [Suspect]
     Active Substance: BENDAMUSTINE HYDROCHLORIDE
     Indication: COMPOSITE LYMPHOMA
     Route: 065
  2. DOXORUBICIN [Suspect]
     Active Substance: DOXORUBICIN
     Dosage: 20MG/M2 EVERY 3 WEEKS; 6 CYCLES, LIPOSOMAL
     Route: 065
  3. CYCLOPHOSPHAMIDE. [Suspect]
     Active Substance: CYCLOPHOSPHAMIDE
     Indication: COMPOSITE LYMPHOMA
     Dosage: 14 DAYS CYCLE (CHOEP)
     Route: 065
  4. ETOPOSIDE. [Suspect]
     Active Substance: ETOPOSIDE
     Indication: COMPOSITE LYMPHOMA
     Dosage: 14 DAYS CYCLE (CHOEP)
     Route: 065
  5. PREDNISOLONE. [Suspect]
     Active Substance: PREDNISOLONE
     Indication: COMPOSITE LYMPHOMA
     Dosage: 14 DAYS CYCLE (CHOEP)
     Route: 065
  6. FILGRASTIM [Suspect]
     Active Substance: FILGRASTIM
     Indication: COMPOSITE LYMPHOMA
     Dosage: 48 MIO U [SIC] FOR 5 DAYS DAILY DOSAGE
     Route: 058
  7. VINCRISTINE [Suspect]
     Active Substance: VINCRISTINE
     Indication: COMPOSITE LYMPHOMA
     Dosage: 14 DAYS CYCLE (CHOEP)
     Route: 065
  8. GEMCITABINE [Suspect]
     Active Substance: GEMCITABINE\GEMCITABINE HYDROCHLORIDE
     Indication: COMPOSITE LYMPHOMA
     Route: 065
  9. OXALIPLATIN. [Suspect]
     Active Substance: OXALIPLATIN
     Indication: COMPOSITE LYMPHOMA
     Route: 065
  10. PIXANTRONE [Suspect]
     Active Substance: PIXANTRONE
     Indication: COMPOSITE LYMPHOMA
     Route: 065
  11. DOXORUBICIN [Suspect]
     Active Substance: DOXORUBICIN
     Indication: COMPOSITE LYMPHOMA
     Dosage: 14 DAYS CYCLE (CHOEP)
     Route: 065

REACTIONS (5)
  - Rash papular [Unknown]
  - Rash maculo-papular [Unknown]
  - Pneumonia [Fatal]
  - Palmar-plantar erythrodysaesthesia syndrome [Unknown]
  - Leukopenia [Unknown]

NARRATIVE: CASE EVENT DATE: 201411
